FAERS Safety Report 6729308-1 (Version None)
Quarter: 2010Q2

REPORT INFORMATION
  Report Type: 
  Country: None (occurrence: None)
  Receive Date: 20100517
  Receipt Date: 20100507
  Transmission Date: 20101027
  Serious: No
  Sender: FDA-Public Use
  Company Number: US-ABBOTT-10P-163-0642958-00

PATIENT
  Sex: Male
  Weight: 104.42 kg

DRUGS (5)
  1. SIMCOR [Suspect]
     Indication: ARTERIOSCLEROSIS
     Dosage: (BLUE/GREEN COLOR TABLET)
     Dates: start: 20100505
  2. PLAVIX [Concomitant]
     Indication: DRUG USE FOR UNKNOWN INDICATION
  3. VERAPAMIL [Concomitant]
     Indication: DRUG USE FOR UNKNOWN INDICATION
  4. ASPIRIN [Concomitant]
     Indication: DRUG USE FOR UNKNOWN INDICATION
  5. NITROGLYCERIN [Concomitant]
     Indication: DRUG USE FOR UNKNOWN INDICATION
     Route: 060

REACTIONS (2)
  - PAIN IN EXTREMITY [None]
  - TREMOR [None]
